FAERS Safety Report 7279867-8 (Version None)
Quarter: 2011Q1

REPORT INFORMATION
  Report Type: 
  Country: None (occurrence: None)
  Receive Date: 20110208
  Receipt Date: 20110201
  Transmission Date: 20110831
  Serious: Yes (Other)
  Sender: FDA-Public Use
  Company Number: US-AMGEN-USASP2011006038

PATIENT
  Age: 48 Year
  Sex: Female

DRUGS (2)
  1. PLAQUENIL [Concomitant]
     Dosage: 1 MG, QOD
     Dates: start: 20100701
  2. ENBREL [Suspect]
     Indication: RHEUMATOID ARTHRITIS
     Dosage: 50 MG, QWK
     Dates: start: 20101130

REACTIONS (8)
  - DISTURBANCE IN ATTENTION [None]
  - FATIGUE [None]
  - DIZZINESS [None]
  - ASTHENIA [None]
  - INJECTION SITE ERYTHEMA [None]
  - INJECTION SITE WARMTH [None]
  - MYCOBACTERIUM TUBERCULOSIS COMPLEX TEST POSITIVE [None]
  - INJECTION SITE SWELLING [None]
